FAERS Safety Report 5410863-9 (Version None)
Quarter: 2007Q3

REPORT INFORMATION
  Report Type: 
  Country: None (occurrence: None)
  Receive Date: 20070810
  Receipt Date: 20070730
  Transmission Date: 20080115
  Serious: Yes (Other)
  Sender: FDA-Public Use
  Company Number: US-JNJFOC-20070702935

PATIENT
  Sex: Female

DRUGS (3)
  1. INVEGA [Suspect]
     Indication: DRUG EXPOSURE DURING PREGNANCY
     Route: 015
  2. PROZAC [Suspect]
     Indication: DRUG EXPOSURE DURING PREGNANCY
     Route: 015
  3. NICOTINE [Suspect]
     Indication: UNEVALUABLE EVENT

REACTIONS (1)
  - DRUG WITHDRAWAL SYNDROME NEONATAL [None]
